FAERS Safety Report 20845799 (Version 1)
Quarter: 2022Q2

REPORT INFORMATION
  Report Type: Spontaneous
  Country: US (occurrence: US)
  Receive Date: 20220518
  Receipt Date: 20220518
  Transmission Date: 20220721
  Serious: No
  Sender: FDA-Public Use
  Company Number: US-PFIZER INC-202101742122

PATIENT
  Age: 86 Year
  Sex: Male
  Weight: 81.65 kg

DRUGS (1)
  1. VYNDAQEL [Suspect]
     Active Substance: TAFAMIDIS MEGLUMINE
     Indication: Amyloidosis
     Dosage: 80 MG, 1X/DAY (FOUR PILLS, ONE A DAY)
     Dates: start: 201902

REACTIONS (2)
  - Hypoacusis [Unknown]
  - Off label use [Unknown]
